FAERS Safety Report 16487854 (Version 1)
Quarter: 2019Q2

REPORT INFORMATION
  Report Type: Report from Study
  Country: US (occurrence: US)
  Receive Date: 20190627
  Receipt Date: 20190627
  Transmission Date: 20190711
  Serious: Yes (Other)
  Sender: FDA-Public Use
  Company Number: US-SHIRE-US201920436

PATIENT
  Age: 59 Year
  Sex: Female

DRUGS (2)
  1. GATTEX [Suspect]
     Active Substance: TEDUGLUTIDE\WATER
     Dosage: 0.1 MILLILITER, 1X/DAY:QD
     Route: 058
     Dates: start: 20190619
  2. GATTEX [Suspect]
     Active Substance: TEDUGLUTIDE\WATER
     Indication: PRODUCT USED FOR UNKNOWN INDICATION
     Dosage: 0.277 MILLILITER, 1X/DAY:QD
     Route: 058
     Dates: start: 20190613, end: 20190614

REACTIONS (3)
  - Stoma obstruction [Recovered/Resolved]
  - Abdominal distension [Recovered/Resolved]
  - Intestinal obstruction [Recovered/Resolved]

NARRATIVE: CASE EVENT DATE: 20190614
